FAERS Safety Report 4678892-0 (Version None)
Quarter: 2005Q2

REPORT INFORMATION
  Report Type: 
  Country: None (occurrence: None)
  Receive Date: 20050525
  Receipt Date: 20050324
  Transmission Date: 20051028
  Serious: No
  Sender: FDA-Public Use
  Company Number: 213379

PATIENT
  Age: 44 Year
  Sex: Female
  Weight: 70.3 kg

DRUGS (4)
  1. RAPTIVA [Suspect]
     Indication: PSORIASIS
     Dosage: 0.7 MG, 1/WEEK, SUBCUTANEOUS
     Route: 058
     Dates: end: 20050318
  2. PREMARIN [Concomitant]
  3. DURAGESIC (FENTANYL CITRATE) [Concomitant]
  4. HYDROCODONE BITARTRATE [Concomitant]

REACTIONS (2)
  - HEADACHE [None]
  - URTICARIA [None]
